FAERS Safety Report 23646206 (Version 1)
Quarter: 2024Q1

REPORT INFORMATION
  Report Type: Spontaneous
  Country: DK (occurrence: DK)
  Receive Date: 20240319
  Receipt Date: 20240319
  Transmission Date: 20240410
  Serious: Yes (Hospitalization)
  Sender: FDA-Public Use
  Company Number: None

PATIENT
  Age: 25 Year
  Sex: Male
  Weight: 100 kg

DRUGS (4)
  1. IBUPROFEN [Suspect]
     Active Substance: IBUPROFEN
     Indication: Wisdom teeth removal
     Dosage: STRENGTH: 200 MG.
     Route: 048
     Dates: start: 20240219, end: 20240220
  2. IBUPROFEN [Suspect]
     Active Substance: IBUPROFEN
     Indication: Wisdom teeth removal
     Dosage: STRENGTH: 200 MG.
     Route: 048
     Dates: start: 20240221, end: 20240222
  3. IBUPROFEN [Suspect]
     Active Substance: IBUPROFEN
     Indication: Wisdom teeth removal
     Dosage: STRENGTH: 200 MG.DOSE: UNKNOWN DOSE BUT THE PATIENT AT LEAST RECEIVED 400 MG ON 25FEB2024.
     Route: 048
     Dates: start: 20240223, end: 20240225
  4. ACETAMINOPHEN [Concomitant]
     Active Substance: ACETAMINOPHEN
     Indication: Wisdom teeth removal
     Route: 065
     Dates: start: 202402

REACTIONS (3)
  - Tubulointerstitial nephritis [Recovering/Resolving]
  - Acute kidney injury [Unknown]
  - Abdominal pain [Unknown]

NARRATIVE: CASE EVENT DATE: 20240223
